FAERS Safety Report 19436569 (Version 3)
Quarter: 2021Q3

REPORT INFORMATION
  Report Type: Spontaneous
  Country: CN (occurrence: CN)
  Receive Date: 20210618
  Receipt Date: 20210709
  Transmission Date: 20211014
  Serious: Yes (Life-Threatening, Hospitalization, Other)
  Sender: FDA-Public Use
  Company Number: CN-PFIZER INC-2021654436

PATIENT
  Age: 12 Year
  Sex: Male

DRUGS (20)
  1. DEXAMETHASONE. [Suspect]
     Active Substance: DEXAMETHASONE
     Dosage: 1 CYCLIC
  2. VINCRISTINE [Suspect]
     Active Substance: VINCRISTINE
     Indication: PRECURSOR B-LYMPHOBLASTIC LYMPHOMA
     Dosage: CAM+VL REINDUCTION THERAPY (1 CYCLIC)
  3. CYTARABINE. [Suspect]
     Active Substance: CYTARABINE
     Indication: PRECURSOR B-LYMPHOBLASTIC LYMPHOMA
     Dosage: CAM+VL (2 CYCLIC)
  4. CYTARABINE. [Suspect]
     Active Substance: CYTARABINE
     Dosage: CAM+VL REINDUCTION THERAPY (1 CYCLIC)
  5. L?ASPARAGINASE [Suspect]
     Active Substance: ASPARAGINASE
     Dosage: CAM+VL (2 CYCLIC)
  6. VINCRISTINE [Suspect]
     Active Substance: VINCRISTINE
     Dosage: VDLD REINDUCTION THERAPY (1 CYCLIC)
  7. L?ASPARAGINASE [Suspect]
     Active Substance: ASPARAGINASE
     Dosage: VDLD (1 CYCLIC)
  8. L?ASPARAGINASE [Suspect]
     Active Substance: ASPARAGINASE
     Dosage: CAM+VL REINDUCTION THERAPY (1 CYCLIC)
  9. METHOTREXATE. [Suspect]
     Active Substance: METHOTREXATE
     Indication: PRECURSOR B-LYMPHOBLASTIC LYMPHOMA
     Dosage: HIGH?DOSE (4 CYCLIC)
  10. MERCAPTOPURINE. [Suspect]
     Active Substance: MERCAPTOPURINE
     Indication: PRECURSOR B-LYMPHOBLASTIC LYMPHOMA
     Dosage: CAM+VL REINDUCTION THERAPY (1 CYCLIC)
  11. DAUNORUBICIN [Suspect]
     Active Substance: DAUNORUBICIN
     Indication: PRECURSOR B-LYMPHOBLASTIC LYMPHOMA
     Dosage: REINDUCTION THERAPY (1 CYCLIC)
  12. DEXAMETHASONE. [Suspect]
     Active Substance: DEXAMETHASONE
     Indication: PRECURSOR B-LYMPHOBLASTIC LYMPHOMA
     Dosage: REINDUCTION THERAPY (1 CYCLIC)
  13. CYCLOPHOSPHAMIDE. [Suspect]
     Active Substance: CYCLOPHOSPHAMIDE
     Dosage: CAM+VL REINDUCTION THERAPY (1 CYCLIC)
  14. MERCAPTOPURINE. [Suspect]
     Active Substance: MERCAPTOPURINE
     Dosage: CAM+VL (2 CYCLIC)
  15. VINCRISTINE [Suspect]
     Active Substance: VINCRISTINE
     Dosage: VDLD (1 CYCLIC)
  16. DAUNORUBICIN [Suspect]
     Active Substance: DAUNORUBICIN
     Dosage: 1 CYCLIC
  17. L?ASPARAGINASE [Suspect]
     Active Substance: ASPARAGINASE
     Indication: PRECURSOR B-LYMPHOBLASTIC LYMPHOMA
     Dosage: VDLD REINDUCTION THERAPY(1 CYCLIC)
  18. VINCRISTINE [Suspect]
     Active Substance: VINCRISTINE
     Dosage: CAM+VL (2 CYCLIC)
  19. PREDNISONE. [Suspect]
     Active Substance: PREDNISONE
     Indication: PRECURSOR B-LYMPHOBLASTIC LYMPHOMA
     Dosage: UNK UNK, CYCLIC
  20. CYCLOPHOSPHAMIDE. [Suspect]
     Active Substance: CYCLOPHOSPHAMIDE
     Indication: PRECURSOR B-LYMPHOBLASTIC LYMPHOMA
     Dosage: CAM+VL (2 CYCLIC)

REACTIONS (2)
  - Second primary malignancy [Unknown]
  - Chloroma [Unknown]
